FAERS Safety Report 6203765-1 (Version None)
Quarter: 2009Q2

REPORT INFORMATION
  Report Type: 
  Country: None (occurrence: None)
  Receive Date: 20090521
  Receipt Date: 20090511
  Transmission Date: 20091009
  Serious: Yes (Other)
  Sender: FDA-Public Use
  Company Number: 09-000756

PATIENT
  Age: 70 Year
  Sex: Female
  Weight: 74.8 kg

DRUGS (8)
  1. DOVONEX [Suspect]
     Indication: PSORIASIS
     Dosage: TOPICAL
     Route: 061
     Dates: start: 20080101, end: 20080401
  2. INSULIN (INSULIN) INJECTION [Concomitant]
  3. GLUCOPHAGE [Concomitant]
  4. LEVOCOR [Concomitant]
  5. NAPROSYN [Concomitant]
  6. SYNTHROID [Concomitant]
  7. HYDROCHLOROTHIAZIDE [Concomitant]
  8. POTASSIUM (POTASSIUM) [Concomitant]

REACTIONS (2)
  - DRUG INEFFECTIVE [None]
  - SKIN CANCER [None]
